FAERS Safety Report 7684895-4 (Version None)
Quarter: 2011Q3

REPORT INFORMATION
  Report Type: 
  Country: None (occurrence: None)
  Receive Date: 20110711
  Receipt Date: 20110516
  Transmission Date: 20111222
  Serious: Yes (Other)
  Sender: FDA-Public Use
  Company Number: IPC201105-001512

PATIENT

DRUGS (2)
  1. METOCLOPRAMIDE HYDROCHLORIDE [Suspect]
     Dates: start: 20010101, end: 20090101
  2. REGLAN [Suspect]
     Dates: start: 20010101, end: 20090101

REACTIONS (1)
  - TARDIVE DYSKINESIA [None]
